FAERS Safety Report 8276384-3 (Version None)
Quarter: 2012Q2

REPORT INFORMATION
  Report Type: 
  Country: None (occurrence: None)
  Receive Date: 20120412
  Receipt Date: 20120403
  Transmission Date: 20120825
  Serious: Yes (Other)
  Sender: FDA-Public Use
  Company Number: US-JNJFOC-20120308615

PATIENT
  Age: 52 Year
  Sex: Male

DRUGS (13)
  1. EMTRICITABINE AND TENOFOVIR DISOPROXIL FUMARATE [Suspect]
     Dosage: ADMINISTERED THROUGH THE GASTROTOMY TUBE
     Route: 048
  2. TRIMETHOPRIM + SULFAMETHOXAZOLE [Concomitant]
  3. ENTECAVIR [Concomitant]
     Route: 065
  4. ETRAVIRINE [Suspect]
     Indication: HIV INFECTION
     Dosage: ADMINISTERED THROUGH THE GASTROTOMY TUBE
     Route: 048
  5. ENTERAL NUTRITION [Concomitant]
  6. POSACONAZOLE [Concomitant]
  7. EMTRICITABINE AND TENOFOVIR DISOPROXIL FUMARATE [Suspect]
     Indication: HIV INFECTION
     Route: 048
  8. ZOLPIDEM [Concomitant]
  9. RALTEGRAVIR [Suspect]
     Indication: HIV INFECTION
     Route: 048
  10. OXYCODONE/ACETAMINOPHEN [Concomitant]
  11. ETRAVIRINE [Suspect]
     Dosage: IN THE MORNING
     Route: 048
  12. RALTEGRAVIR [Suspect]
     Dosage: ADMINISTERED THROUGH THE GASTROTOMY TUBE
     Route: 048
  13. OMEPRAZOLE [Concomitant]

REACTIONS (2)
  - OESOPHAGITIS ULCERATIVE [None]
  - OESOPHAGEAL PERFORATION [None]
